FAERS Safety Report 20774581 (Version 1)
Quarter: 2022Q2

REPORT INFORMATION
  Report Type: Spontaneous
  Country: US (occurrence: None)
  Receive Date: 20220430
  Receipt Date: 20220430
  Transmission Date: 20220721
  Serious: Yes (Disabling)
  Sender: FDA-Public Use
  Company Number: None

PATIENT
  Age: 37 Year
  Sex: Female
  Weight: 42.3 kg

DRUGS (3)
  1. PEPCID [Suspect]
     Active Substance: FAMOTIDINE
     Indication: Dyspepsia
     Dosage: OTHER QUANTITY : 1 TABLET(S);?FREQUENCY : AT BEDTIME;?
     Route: 048
     Dates: start: 20201201, end: 20210223
  2. SEROQUEL [Concomitant]
     Active Substance: QUETIAPINE FUMARATE
  3. LAMICTAL [Concomitant]
     Active Substance: LAMOTRIGINE

REACTIONS (10)
  - Depression [None]
  - Suicidal ideation [None]
  - Insomnia [None]
  - Weight decreased [None]
  - Derealisation [None]
  - Depersonalisation/derealisation disorder [None]
  - Mood swings [None]
  - Panic attack [None]
  - Anxiety [None]
  - Anxiety [None]

NARRATIVE: CASE EVENT DATE: 20210223
